FAERS Safety Report 19146317 (Version 1)
Quarter: 2021Q2

REPORT INFORMATION
  Report Type: Spontaneous
  Country: US (occurrence: US)
  Receive Date: 20210416
  Receipt Date: 20210416
  Transmission Date: 20210717
  Serious: Yes (Hospitalization)
  Sender: FDA-Public Use
  Company Number: US-PFIZER INC-2021284624

PATIENT
  Age: 61 Year
  Sex: Female
  Weight: 65.76 kg

DRUGS (7)
  1. MORPHINE [Concomitant]
     Active Substance: MORPHINE
  2. INLYTA [Suspect]
     Active Substance: AXITINIB
     Indication: RENAL CANCER
     Dosage: 5 MG, 2X/DAY
     Route: 048
  3. TYLENOL [Concomitant]
     Active Substance: ACETAMINOPHEN
  4. OXYCODONE [Concomitant]
     Active Substance: OXYCODONE
  5. PROMETHAZINE [Concomitant]
     Active Substance: PROMETHAZINE HYDROCHLORIDE
  6. ONDANSETRON [Concomitant]
     Active Substance: ONDANSETRON
  7. DIPHENHYDRAMINE. [Concomitant]
     Active Substance: DIPHENHYDRAMINE

REACTIONS (2)
  - Pain [Unknown]
  - Neoplasm progression [Unknown]
